FAERS Safety Report 20001771 (Version 1)
Quarter: 2021Q4

REPORT INFORMATION
  Report Type: Spontaneous
  Country: GB (occurrence: GB)
  Receive Date: 20211027
  Receipt Date: 20211027
  Transmission Date: 20220304
  Serious: Yes (Other)
  Sender: FDA-Public Use
  Company Number: None

PATIENT
  Age: 25 Year
  Sex: Male

DRUGS (1)
  1. CIPROFLOXACIN [Suspect]
     Active Substance: CIPROFLOXACIN
     Indication: Prostatitis
     Dosage: 500 MG
     Route: 048
     Dates: start: 20210630

REACTIONS (8)
  - Paraesthesia [Recovered/Resolved]
  - Muscular weakness [Recovered/Resolved]
  - Neuropathy peripheral [Not Recovered/Not Resolved]
  - Burning sensation [None]
  - Formication [None]
  - Muscle twitching [None]
  - Joint noise [None]
  - Arthralgia [None]

NARRATIVE: CASE EVENT DATE: 20210928
